FAERS Safety Report 8169577-7 (Version None)
Quarter: 2012Q1

REPORT INFORMATION
  Report Type: 
  Country: None (occurrence: None)
  Receive Date: 20120104
  Receipt Date: 20111128
  Transmission Date: 20120608
  Serious: No
  Sender: FDA-Public Use
  Company Number: 2011HGS-002867

PATIENT
  Age: 29 Year
  Sex: Female
  Weight: 99.7913 kg

DRUGS (9)
  1. PROPRANOLOL [Concomitant]
  2. DIGOXIN [Concomitant]
  3. GABAPENTIN [Concomitant]
  4. PLAQUENIL [Concomitant]
  5. ZYRTEC [Concomitant]
  6. SYNTHROID (ILEVOTHYROXINE SODIUM) [Concomitant]
  7. PREDNISONE TAB [Concomitant]
  8. BENLYSTA [Suspect]
     Indication: SYSTEMIC LUPUS ERYTHEMATOSUS
     Dosage: 1 IN 28 D, INTRAVENOUS DRIP
     Route: 041
     Dates: start: 20111109
  9. ALBUTEROL [Concomitant]

REACTIONS (8)
  - CHEST DISCOMFORT [None]
  - CHILLS [None]
  - NAUSEA [None]
  - PRODUCTIVE COUGH [None]
  - WHEEZING [None]
  - DIARRHOEA [None]
  - URTICARIA [None]
  - BRONCHITIS [None]
